FAERS Safety Report 4341867-5 (Version None)
Quarter: 2004Q2

REPORT INFORMATION
  Report Type: 
  Country: None (occurrence: None)
  Receive Date: 20040415
  Receipt Date: 20040329
  Transmission Date: 20050107
  Serious: Yes (Disabling)
  Sender: FDA-Public Use
  Company Number: USA040361555

PATIENT
  Sex: Male

DRUGS (1)
  1. CIALIS [Suspect]
     Dosage: 20 MG
     Dates: start: 20040201, end: 20040201

REACTIONS (5)
  - BALANCE DISORDER [None]
  - DEAFNESS UNILATERAL [None]
  - FALL [None]
  - IMPAIRED WORK ABILITY [None]
  - VERTIGO [None]
